FAERS Safety Report 22370984 (Version 1)
Quarter: 2023Q2

REPORT INFORMATION
  Report Type: Spontaneous
  Country: ES (occurrence: ES)
  Receive Date: 20230526
  Receipt Date: 20230526
  Transmission Date: 20230722
  Serious: Yes (Other)
  Sender: FDA-Public Use
  Company Number: ES-MLMSERVICE-20230510-4278589-1

PATIENT
  Age: 25 Year
  Sex: Male

DRUGS (1)
  1. ACETAMINOPHEN [Suspect]
     Active Substance: ACETAMINOPHEN
     Indication: Testicular pain
     Dosage: 8 GRAM
     Route: 065

REACTIONS (7)
  - Ammonia increased [Unknown]
  - Blood bilirubin increased [Unknown]
  - Coagulation test abnormal [Unknown]
  - Hepatic lesion [Unknown]
  - Transaminases increased [Unknown]
  - Toxicity to various agents [Unknown]
  - Intentional overdose [Unknown]
